FAERS Safety Report 16780730 (Version 1)
Quarter: 2019Q3

REPORT INFORMATION
  Report Type: Spontaneous
  Country: US (occurrence: US)
  Receive Date: 20190717
  Receipt Date: 20190717
  Transmission Date: 20191005
  Serious: Yes (Other)
  Sender: FDA-Public Use
  Company Number: None

PATIENT
  Age: 11 Year
  Sex: Female
  Weight: 59.42 kg

DRUGS (2)
  1. CLOMIPRAMINE [Suspect]
     Active Substance: CLOMIPRAMINE
     Indication: ANXIETY
     Route: 048
     Dates: start: 20181201, end: 20190601
  2. CLOMIPRAMINE [Suspect]
     Active Substance: CLOMIPRAMINE
     Indication: AUTISM SPECTRUM DISORDER
     Route: 048
     Dates: start: 20181201, end: 20190601

REACTIONS (2)
  - Anxiety [None]
  - Abnormal behaviour [None]

NARRATIVE: CASE EVENT DATE: 20190501
